FAERS Safety Report 8523011-3 (Version None)
Quarter: 2012Q3

REPORT INFORMATION
  Report Type: 
  Country: None (occurrence: None)
  Receive Date: 20120720
  Receipt Date: 20101220
  Transmission Date: 20120928
  Serious: Yes (Other)
  Sender: FDA-Public Use
  Company Number: US-BAYER-201013049NA

PATIENT
  Sex: Female
  Weight: 93 kg

DRUGS (11)
  1. FEXOFENADINE [Concomitant]
     Indication: HYPERSENSITIVITY
     Dosage: 180 MG (DAILY DOSE), ,
     Dates: start: 20080517, end: 20080617
  2. VALTREX [Concomitant]
     Indication: HERPES VIRUS INFECTION
     Dates: start: 20080421, end: 20080521
  3. YASMIN [Suspect]
     Indication: CONTRACEPTION
     Dosage: START DATE: MONTH SUPPLY 9/05 FROM HCP
     Route: 048
     Dates: start: 20050921, end: 20080615
  4. OMEPRAZOLE [Concomitant]
     Indication: GASTROOESOPHAGEAL REFLUX DISEASE
     Dosage: 20 MG (DAILY DOSE), ,
     Dates: start: 20080430, end: 20080530
  5. YASMIN [Suspect]
     Indication: ACNE
  6. NEXIUM [Concomitant]
     Indication: GASTROOESOPHAGEAL REFLUX DISEASE
     Dosage: 40 MG (DAILY DOSE), ,
     Dates: start: 20080528, end: 20080628
  7. ALLEGRA [Concomitant]
  8. YAZ [Suspect]
     Indication: PRODUCT USED FOR UNKNOWN INDICATION
     Route: 048
     Dates: start: 20050921
  9. ALBUTEROL [Concomitant]
     Indication: PULMONARY CONGESTION
     Dosage: 4 MG (DAILY DOSE), ,
     Dates: start: 20080528, end: 20080628
  10. CLIMARA [Concomitant]
     Indication: CONTRACEPTION
     Dates: start: 20080519, end: 20080619
  11. DROSPIRENONE AND ETHINYL ESTRADIOL [Suspect]
     Indication: PRODUCT USED FOR UNKNOWN INDICATION

REACTIONS (8)
  - CHOLECYSTITIS ACUTE [None]
  - CHOLELITHIASIS [None]
  - ABDOMINAL PAIN UPPER [None]
  - CHEST PAIN [None]
  - VOMITING [None]
  - HEADACHE [None]
  - NAUSEA [None]
  - MUCOSAL EROSION [None]
